FAERS Safety Report 16686916 (Version 1)
Quarter: 2019Q3

REPORT INFORMATION
  Report Type: Spontaneous
  Country: GB (occurrence: GB)
  Receive Date: 20190809
  Receipt Date: 20190809
  Transmission Date: 20191004
  Serious: Yes (Other)
  Sender: FDA-Public Use
  Company Number: GB-SA-2019SA206724

PATIENT
  Age: 34 Year
  Sex: Male

DRUGS (3)
  1. FEXOFENADINE [Suspect]
     Active Substance: FEXOFENADINE HYDROCHLORIDE
     Indication: CHRONIC SPONTANEOUS URTICARIA
     Dosage: INTERMITTENTLY FOR LAST 12 MONTHS. HAS HAD DOSES UP TO 4 TIMES/DAY
  2. MONTELUKAST [Concomitant]
     Active Substance: MONTELUKAST SODIUM
     Dosage: IN THE EVENING
     Route: 065
  3. FEXOFENADINE [Suspect]
     Active Substance: FEXOFENADINE HYDROCHLORIDE
     Dosage: INTERMITTENTLY FOR LAST 12 MONTHS. HAS HAD DOSES UP TO 4 TIMES/DAY BUT NOW ONCE DAILY.
     Route: 065

REACTIONS (1)
  - Gynaecomastia [Not Recovered/Not Resolved]
